FAERS Safety Report 13613316 (Version 3)
Quarter: 2017Q3

REPORT INFORMATION
  Report Type: Report from Study
  Country: CA (occurrence: CA)
  Receive Date: 20170605
  Receipt Date: 20170807
  Transmission Date: 20171127
  Serious: Yes (Hospitalization)
  Sender: FDA-Public Use
  Company Number: CA-ACTELION-A-US2016-144189

PATIENT
  Age: 51 Year
  Sex: Female

DRUGS (9)
  1. TIAZAC [Concomitant]
     Active Substance: DILTIAZEM HYDROCHLORIDE
  2. MULTI VITAMIN [Concomitant]
     Active Substance: VITAMINS
  3. ADCIRCA [Concomitant]
     Active Substance: TADALAFIL
  4. OMEGA 3 6 9 [Concomitant]
     Active Substance: FISH OIL
  5. MAGNESIUM [Concomitant]
     Active Substance: MAGNESIUM
  6. OPSUMIT [Suspect]
     Active Substance: MACITENTAN
     Indication: PULMONARY ARTERIAL HYPERTENSION
     Route: 048
  7. LEVOTHYROXINE. [Concomitant]
     Active Substance: LEVOTHYROXINE
  8. CARIPUL [Suspect]
     Active Substance: EPOPROSTENOL
     Indication: PULMONARY ARTERIAL HYPERTENSION
     Dosage: 7.5 MG/ 24 H
     Route: 042
     Dates: start: 20160726
  9. FUROSEMIDE. [Concomitant]
     Active Substance: FUROSEMIDE

REACTIONS (16)
  - Device related infection [Recovered/Resolved]
  - Device occlusion [Recovered/Resolved]
  - Hypotension [Recovered/Resolved]
  - Delusion [Not Recovered/Not Resolved]
  - Device connection issue [Recovered/Resolved]
  - Mania [Not Recovered/Not Resolved]
  - Catheter site haemorrhage [Recovered/Resolved]
  - Pyrexia [Recovering/Resolving]
  - Body temperature increased [Recovered/Resolved]
  - Device use error [Not Recovered/Not Resolved]
  - Catheter placement [Recovered/Resolved]
  - Chills [Recovered/Resolved]
  - Streptococcal infection [Not Recovered/Not Resolved]
  - Catheter site pruritus [Not Recovered/Not Resolved]
  - Thrombosis in device [Recovered/Resolved]
  - Cardiomegaly [Not Recovered/Not Resolved]

NARRATIVE: CASE EVENT DATE: 20161116
